FAERS Safety Report 9189214 (Version 1)
Quarter: 2013Q1

REPORT INFORMATION
  Report Type: Spontaneous
  Country: US (occurrence: None)
  Receive Date: 20130321
  Receipt Date: 20130321
  Transmission Date: 20140127
  Serious: Yes (Other)
  Sender: FDA-Public Use
  Company Number: None

PATIENT
  Age: 17 Year
  Sex: Male
  Weight: 72.58 kg

DRUGS (3)
  1. CETYLPYRIDINIUM CHLORIDE [Suspect]
     Indication: DENTAL CARE
     Dosage: 20ML  2X DAY  DENTAL
     Dates: start: 20121115, end: 20130313
  2. CETYLPYRIDINIUM CHLORIDE [Suspect]
     Indication: DENTAL DISORDER PROPHYLAXIS
     Dosage: 20ML  2X DAY  DENTAL
     Dates: start: 20121115, end: 20130313
  3. CETYLPYRIDINIUM CHLORIDE [Suspect]
     Dosage: 20ML  2X DAY  DENTAL
     Dates: start: 20121115, end: 20130313

REACTIONS (3)
  - Tooth discolouration [None]
  - Gingival bleeding [None]
  - Dysgeusia [None]
